FAERS Safety Report 4963221-5 (Version None)
Quarter: 2006Q1

REPORT INFORMATION
  Report Type: 
  Country: None (occurrence: None)
  Receive Date: 20060331
  Receipt Date: 20060323
  Transmission Date: 20060701
  Serious: Yes (Hospitalization)
  Sender: FDA-Public Use
  Company Number: 430021K06USA

PATIENT
  Age: 63 Year
  Sex: Male

DRUGS (2)
  1. NOVANTRONE [Suspect]
     Indication: MULTIPLE SCLEROSIS
     Dosage: 1 IN 3 MONTHS, INTRAVENOUS
     Route: 042
     Dates: start: 20031201, end: 20051201
  2. XANAX [Concomitant]

REACTIONS (3)
  - AORTIC ANEURYSM [None]
  - DEEP VEIN THROMBOSIS [None]
  - PULMONARY THROMBOSIS [None]
